FAERS Safety Report 14819487 (Version 2)
Quarter: 2018Q2

REPORT INFORMATION
  Report Type: Spontaneous
  Country: US (occurrence: US)
  Receive Date: 20180427
  Receipt Date: 20180618
  Transmission Date: 20180711
  Serious: No
  Sender: FDA-Public Use
  Company Number: US-BAYER-2018-071933

PATIENT
  Sex: Male

DRUGS (1)
  1. MIRALAX [Suspect]
     Active Substance: POLYETHYLENE GLYCOL 3350
     Dosage: UNK
     Route: 065

REACTIONS (5)
  - Malaise [Unknown]
  - Incorrect drug administration duration [Unknown]
  - Product solubility abnormal [None]
  - Gastric disorder [Unknown]
  - Abdominal discomfort [Unknown]
